FAERS Safety Report 4344921-7 (Version None)
Quarter: 2004Q2

REPORT INFORMATION
  Report Type: 
  Country: None (occurrence: None)
  Receive Date: 20040420
  Receipt Date: 20040409
  Transmission Date: 20050107
  Serious: Yes (Life-Threatening, Other)
  Sender: FDA-Public Use
  Company Number: US-JNJFOC-20040401987

PATIENT
  Age: 74 Year
  Sex: Female
  Weight: 85.2762 kg

DRUGS (13)
  1. NATRECOR [Suspect]
     Indication: CARDIAC FAILURE CONGESTIVE
     Dosage: SEE IMAGE, INTRAVEOUS
     Route: 042
     Dates: start: 20040401
  2. NATRECOR [Suspect]
     Indication: CARDIAC FAILURE CONGESTIVE
     Dosage: SEE IMAGE, INTRAVEOUS
     Route: 042
     Dates: start: 20040408
  3. REGULAR INSULIN [Suspect]
     Indication: DIABETES MELLITUS
     Dosage: SLIDING SCALE
  4. LANTUS INSULIN (INSULIN GLARGINE) [Suspect]
     Indication: DIABETES MELLITUS
     Dosage: 30 UL, 1 IN 12 HOUR, SUBCUTANEOUS
     Route: 058
  5. ASPIRIN [Concomitant]
  6. FUROSEMIDE [Concomitant]
  7. HEPARIN [Concomitant]
  8. JARRODOPHILUS (ALL OTHER THERAPEUTIC PRODUCTS) CAPSULES [Concomitant]
  9. LANOXIN [Concomitant]
  10. METHYLPREDNISOLONE [Concomitant]
  11. NITROGLYCERINE PATCH (GLYCERYL TRINITRATE) [Concomitant]
  12. NYSTATIN [Concomitant]
  13. PARENTERAL NUTRITION (PARENTERAL) [Concomitant]

REACTIONS (2)
  - DEPRESSED LEVEL OF CONSCIOUSNESS [None]
  - HYPOGLYCAEMIA [None]
